FAERS Safety Report 9301100 (Version 2)
Quarter: 2013Q2

REPORT INFORMATION
  Report Type: Spontaneous
  Country: CN (occurrence: CN)
  Receive Date: 20130521
  Receipt Date: 20130524
  Transmission Date: 20140414
  Serious: Yes (Other)
  Sender: FDA-Public Use
  Company Number: CN-ROCHE-1226946

PATIENT
  Age: 40 Year
  Sex: Female

DRUGS (2)
  1. AVASTIN [Suspect]
     Indication: OVARIAN CANCER
     Dosage: LAST DOSE RECEIVED ON: 21/MAR/2013
     Route: 065
  2. PACLITAXEL [Concomitant]
     Indication: OVARIAN CANCER
     Dosage: LAST DOSE RECEIVED ON: 21/MAR/2013
     Route: 065

REACTIONS (1)
  - Disease progression [Unknown]
